FAERS Safety Report 4625011-2 (Version None)
Quarter: 2005Q2

REPORT INFORMATION
  Report Type: 
  Country: None (occurrence: None)
  Receive Date: 20050325
  Receipt Date: 20050105
  Transmission Date: 20051028
  Serious: No
  Sender: FDA-Public Use
  Company Number: US_0501111336

PATIENT
  Age: 43 Year
  Sex: Female
  Weight: 59 kg

DRUGS (6)
  1. FORTEO [Suspect]
     Indication: OSTEOPOROSIS
     Dosage: 20 UG DAY
     Dates: start: 20040701
  2. PREDNISONE [Concomitant]
  3. IMURAN [Concomitant]
  4. PROTONIX [Concomitant]
  5. AMBIEN [Concomitant]
  6. ORAL CONTRACEPTIVE NOS [Concomitant]

REACTIONS (4)
  - INJECTION SITE HAEMORRHAGE [None]
  - INJECTION SITE PAIN [None]
  - POLLAKIURIA [None]
  - SLEEP DISORDER [None]
